FAERS Safety Report 15497774 (Version 1)
Quarter: 2018Q4

REPORT INFORMATION
  Report Type: Spontaneous
  Country: US (occurrence: US)
  Receive Date: 20181015
  Receipt Date: 20181015
  Transmission Date: 20190205
  Serious: No
  Sender: FDA-Public Use
  Company Number: US-AUROBINDO-AUR-APU-2018-036851

PATIENT
  Sex: Male

DRUGS (2)
  1. RIVASTIGMINE TARTRATE CAPSULES USP  3MG [Suspect]
     Active Substance: RIVASTIGMINE TARTRATE
     Indication: PARKINSON^S DISEASE
     Dosage: 2 DOSAGE FORM, DAILY, 1 WITH BREAKFAST AND 1 WITH DINNER
     Route: 065
     Dates: start: 20180606
  2. LEVODOPA [Concomitant]
     Active Substance: LEVODOPA
     Indication: PRODUCT USED FOR UNKNOWN INDICATION
     Route: 065

REACTIONS (1)
  - Gait disturbance [Unknown]
